FAERS Safety Report 7598264-9 (Version None)
Quarter: 2011Q3

REPORT INFORMATION
  Report Type: 
  Country: None (occurrence: None)
  Receive Date: 20110708
  Receipt Date: 20110629
  Transmission Date: 20111222
  Serious: No
  Sender: FDA-Public Use
  Company Number: US-B.I. PHARMACEUTICALS,INC./RIDGEFIELD-2011-BP-16692BP

PATIENT
  Sex: Female

DRUGS (8)
  1. CATAPRES-TTS-1 [Suspect]
     Indication: HYPERTENSION
     Dosage: 0.1 MG
  2. VERPAMIL HCL [Concomitant]
     Indication: HYPERTENSION
     Dosage: 180 MG
  3. BENICAR [Concomitant]
     Indication: HYPERTENSION
     Dosage: 40 MG
  4. ASPIRIN [Concomitant]
  5. CATAPRES [Suspect]
     Indication: HYPERTENSION
     Route: 048
     Dates: start: 20070101, end: 20070101
  6. CATAPRES [Suspect]
     Dosage: 0.1 MG
     Route: 048
     Dates: start: 20110626
  7. METELAZONE [Concomitant]
     Indication: HYPERTENSION
     Dosage: 2.5 MG
  8. PRAVASTATIN SODIUM [Concomitant]
     Indication: BLOOD CHOLESTEROL INCREASED

REACTIONS (2)
  - HYPERTENSION [None]
  - SOMNOLENCE [None]
